FAERS Safety Report 4648812-3 (Version None)
Quarter: 2005Q2

REPORT INFORMATION
  Report Type: 
  Country: None (occurrence: None)
  Receive Date: 20050427
  Receipt Date: 20050413
  Transmission Date: 20051028
  Serious: Yes (Hospitalization, Disabling)
  Sender: FDA-Public Use
  Company Number: SUSI-2005-00279

PATIENT
  Age: 27 Year
  Sex: Male
  Weight: 83.9 kg

DRUGS (13)
  1. ADDERALL 10 [Suspect]
     Indication: ATTENTION DEFICIT/HYPERACTIVITY DISORDER
     Dosage: 30 MG DAILY
     Dates: start: 20040801, end: 20041201
  2. WARFARIN SODIUM [Concomitant]
  3. PLAVIX [Concomitant]
  4. ASPIRIN [Concomitant]
  5. FISH OIL (FISH OIL) [Concomitant]
  6. COENZYME Q10 [Concomitant]
  7. SIMVASTATIN [Concomitant]
  8. ALLEGRA [Concomitant]
  9. KLONOPIN [Concomitant]
  10. ALTACE [Concomitant]
  11. TOPROL-XL [Concomitant]
  12. PREVACID [Concomitant]
  13. RITALIN [Concomitant]

REACTIONS (3)
  - ANGINA PECTORIS [None]
  - CORONARY ARTERIAL STENT INSERTION [None]
  - NAUSEA [None]
